FAERS Safety Report 16623123 (Version 6)
Quarter: 2020Q2

REPORT INFORMATION
  Report Type: Spontaneous
  Country: US (occurrence: US)
  Receive Date: 20190723
  Receipt Date: 20200407
  Transmission Date: 20200713
  Serious: Yes (Hospitalization)
  Sender: FDA-Public Use
  Company Number: US-ACTELION-A-NJ2018-173458

PATIENT
  Sex: Female
  Weight: 105.22 kg

DRUGS (10)
  1. DILTIAZEM. [Concomitant]
     Active Substance: DILTIAZEM
  2. TADALAFIL. [Concomitant]
     Active Substance: TADALAFIL
  3. TYVASO [Suspect]
     Active Substance: TREPROSTINIL
     Indication: PULMONARY ARTERIAL HYPERTENSION
     Dosage: 18-54 MCG (3-9 BREATHS), QID
     Route: 055
     Dates: start: 20160616
  4. LETAIRIS [Concomitant]
     Active Substance: AMBRISENTAN
  5. UPTRAVI [Suspect]
     Active Substance: SELEXIPAG
     Indication: PULMONARY ARTERIAL HYPERTENSION
     Dosage: 1600 MCG, BID
     Route: 048
  6. UPTRAVI [Suspect]
     Active Substance: SELEXIPAG
     Dosage: UNK
     Route: 048
  7. AMBRISENTAN [Concomitant]
     Active Substance: AMBRISENTAN
  8. UPTRAVI [Suspect]
     Active Substance: SELEXIPAG
     Dosage: 400 MCG, BID
     Route: 048
     Dates: start: 20180510
  9. ADEMPAS [Concomitant]
     Active Substance: RIOCIGUAT
     Dosage: 0.5 MCG, TID
  10. ADCIRCA [Concomitant]
     Active Substance: TADALAFIL

REACTIONS (17)
  - Fluid retention [Unknown]
  - Pulmonary arterial hypertension [Unknown]
  - Oxygen consumption increased [Unknown]
  - Cellulitis [Unknown]
  - Dyspnoea exertional [Unknown]
  - Headache [Unknown]
  - Confusional state [Not Recovered/Not Resolved]
  - Diarrhoea [Unknown]
  - Oedema peripheral [Unknown]
  - Amnesia [Not Recovered/Not Resolved]
  - Abdominal discomfort [Unknown]
  - Dizziness [Unknown]
  - Pain in extremity [Unknown]
  - Body temperature increased [Unknown]
  - Constipation [Unknown]
  - Fluid overload [Unknown]
  - Rales [Unknown]
